FAERS Safety Report 5509129-8 (Version None)
Quarter: 2007Q4

REPORT INFORMATION
  Report Type: 
  Country: None (occurrence: None)
  Receive Date: 20071107
  Receipt Date: 20071031
  Transmission Date: 20080405
  Serious: Yes (Other)
  Sender: FDA-Public Use
  Company Number: DE-ELI_LILLY_AND_COMPANY-DE200710004791

PATIENT
  Sex: Female
  Weight: 100 kg

DRUGS (5)
  1. STRATTERA [Suspect]
     Indication: ATTENTION DEFICIT/HYPERACTIVITY DISORDER
     Dates: end: 20070821
  2. STRATTERA [Suspect]
     Dosage: 18 MG, DAILY (1/D)
     Route: 048
     Dates: start: 20070731, end: 20070821
  3. STRATTERA [Suspect]
     Dosage: 25 MG, DAILY (1/D)
     Route: 048
     Dates: start: 20070808, end: 20070821
  4. STRATTERA [Suspect]
     Dosage: 40 MG, DAILY (1/D)
     Route: 058
     Dates: start: 20070814, end: 20070821
  5. STRATTERA [Suspect]
     Dosage: 60 MG, DAILY (1/D)
     Route: 048
     Dates: start: 20070818, end: 20070821

REACTIONS (1)
  - ALANINE AMINOTRANSFERASE INCREASED [None]
